FAERS Safety Report 8436717-1 (Version None)
Quarter: 2012Q2

REPORT INFORMATION
  Report Type: 
  Country: None (occurrence: None)
  Receive Date: 20120611
  Receipt Date: 20120611
  Transmission Date: 20120825
  Serious: No
  Sender: FDA-Public Use
  Company Number: None

PATIENT
  Sex: Female
  Weight: 58.9676 kg

DRUGS (1)
  1. JANUVIA [Suspect]
     Indication: DIABETES MELLITUS
     Dosage: 1 TAB BY MOUTH ONCE DAILY
     Route: 048
     Dates: start: 20120117

REACTIONS (2)
  - MUSCULOSKELETAL CHEST PAIN [None]
  - GASTROOESOPHAGEAL REFLUX DISEASE [None]
